FAERS Safety Report 12997500 (Version 1)
Quarter: 2016Q4

REPORT INFORMATION
  Report Type: Spontaneous
  Country: US (occurrence: US)
  Receive Date: 20161202
  Receipt Date: 20161202
  Transmission Date: 20170207
  Serious: Yes (Hospitalization)
  Sender: FDA-Public Use
  Company Number: None

PATIENT
  Age: 67 Year
  Sex: Male
  Weight: 85.2 kg

DRUGS (1)
  1. GALANTAMINE. [Suspect]
     Active Substance: GALANTAMINE
     Indication: MEMORY IMPAIRMENT
     Route: 048
     Dates: start: 20150130, end: 20150415

REACTIONS (2)
  - Hallucination, auditory [None]
  - Depression [None]

NARRATIVE: CASE EVENT DATE: 20150415
